FAERS Safety Report 20037753 (Version 2)
Quarter: 2021Q4

REPORT INFORMATION
  Report Type: Spontaneous
  Country: AU (occurrence: AU)
  Receive Date: 20211105
  Receipt Date: 20211111
  Transmission Date: 20220303
  Serious: Yes (Hospitalization, Other)
  Sender: FDA-Public Use
  Company Number: AU-NOVOPROD-862392

PATIENT
  Age: 40 Year
  Sex: Female

DRUGS (1)
  1. OZEMPIC [Suspect]
     Active Substance: SEMAGLUTIDE
     Indication: Weight control
     Dosage: UNK, QW
     Route: 065

REACTIONS (2)
  - Thyroid mass [Unknown]
  - Off label use [Unknown]
